FAERS Safety Report 15058256 (Version 2)
Quarter: 2019Q1

REPORT INFORMATION
  Report Type: Spontaneous
  Country: US (occurrence: US)
  Receive Date: 20180625
  Receipt Date: 20190325
  Transmission Date: 20190417
  Serious: Yes (Other)
  Sender: FDA-Public Use
  Company Number: US-TEVA-2018-US-912004

PATIENT
  Age: 75 Year
  Sex: Male

DRUGS (10)
  1. PRAVASTATIN. [Suspect]
     Active Substance: PRAVASTATIN
     Indication: PRODUCT USED FOR UNKNOWN INDICATION
     Route: 065
  2. BABY ASPIRIN [Concomitant]
     Active Substance: ASPIRIN
  3. TRAMOL [Concomitant]
  4. XTANDI [Suspect]
     Active Substance: ENZALUTAMIDE
     Indication: PROSTATE CANCER METASTATIC
     Dosage: 160 MILLIGRAM DAILY;
     Route: 048
     Dates: start: 201712, end: 20171213
  5. PANTOPRAZOLE [Concomitant]
     Active Substance: PANTOPRAZOLE
  6. XTANDI [Suspect]
     Active Substance: ENZALUTAMIDE
     Dosage: 40 MILLIGRAM DAILY;
     Route: 048
     Dates: start: 20180108
  7. ZETIA [Suspect]
     Active Substance: EZETIMIBE
     Indication: PRODUCT USED FOR UNKNOWN INDICATION
     Route: 065
  8. LEVOTHYROXINE. [Concomitant]
     Active Substance: LEVOTHYROXINE
     Dosage: 0.50/EQ
  9. OCUVITE [Concomitant]
     Active Substance: VITAMINS
  10. LUPRON [Concomitant]
     Active Substance: LEUPROLIDE ACETATE

REACTIONS (7)
  - Dizziness [Unknown]
  - Feeling abnormal [Unknown]
  - Myocardial infarction [Unknown]
  - Coronary artery occlusion [Recovered/Resolved]
  - Gastric ulcer [Recovering/Resolving]
  - Oesophageal ulcer [Recovering/Resolving]
  - Back pain [Unknown]

NARRATIVE: CASE EVENT DATE: 201712
